FAERS Safety Report 12096070 (Version 1)
Quarter: 2016Q1

REPORT INFORMATION
  Report Type: Other
  Country: US (occurrence: US)
  Receive Date: 20160220
  Receipt Date: 20160220
  Transmission Date: 20160526
  Serious: No
  Sender: FDA-Public Use
  Company Number: US-ACORDA-ACO_110018_2015

PATIENT
  Age: 42 Year
  Sex: Male
  Weight: 81.63 kg

DRUGS (1)
  1. AMPYRA [Suspect]
     Active Substance: DALFAMPRIDINE
     Indication: MULTIPLE SCLEROSIS
     Dosage: 10 MG, Q 12 HRS
     Route: 048
     Dates: start: 201411, end: 20150315

REACTIONS (5)
  - Therapeutic response unexpected [Unknown]
  - Diarrhoea [Unknown]
  - Hepatic enzyme increased [Unknown]
  - Red blood cell count increased [Unknown]
  - White blood cell count decreased [Unknown]

NARRATIVE: CASE EVENT DATE: 20150313
